FAERS Safety Report 6071373-1 (Version None)
Quarter: 2009Q1

REPORT INFORMATION
  Report Type: 
  Country: None (occurrence: None)
  Receive Date: 20090204
  Receipt Date: 20090127
  Transmission Date: 20090719
  Serious: Yes (Other)
  Sender: FDA-Public Use
  Company Number: CHPA2009US01196

PATIENT
  Age: 76 Year
  Sex: Female
  Weight: 69.8 kg

DRUGS (4)
  1. TRANSDERM SCOP [Suspect]
     Indication: SALIVARY HYPERSECRETION
     Dosage: TRANSDERMAL
     Route: 062
     Dates: start: 20081201
  2. LIPSONIC [Concomitant]
  3. LIPITO(ATORVASTATIN) [Concomitant]
  4. NORVASC [Concomitant]

REACTIONS (8)
  - ABASIA [None]
  - APHASIA [None]
  - ASTHENIA [None]
  - DYSKINESIA [None]
  - HALLUCINATION [None]
  - OFF LABEL USE [None]
  - RESTLESSNESS [None]
  - VISION BLURRED [None]
